FAERS Safety Report 8768569 (Version 1)
Quarter: 2012Q4

REPORT INFORMATION
  Report Type: 
  Country: US (occurrence: US)
  Receive Date: 20120904
  Receipt Date: 20120904
  Transmission Date: 20130627
  Serious: No
  Sender: FDA-Public Use
  Company Number: US-AMGEN-USASP2012048939

PATIENT
  Sex: Female

DRUGS (3)
  1. ENBREL [Suspect]
     Indication: RHEUMATOID ARTHRITIS
     Dosage: 50 mg, qwk
     Dates: start: 2002
  2. PREDNISONE [Concomitant]
     Dosage: UNK
  3. CYCLOSPORINE [Concomitant]
     Dosage: UNK

REACTIONS (13)
  - Weight increased [Unknown]
  - Tremor [Unknown]
  - Visual acuity reduced [Unknown]
  - Tooth loss [Unknown]
  - Bone loss [Unknown]
  - Hypocalcaemia [Unknown]
  - Polymyositis [Unknown]
  - Raynaud^s phenomenon [Unknown]
  - Injection site swelling [Not Recovered/Not Resolved]
  - Injection site erythema [Not Recovered/Not Resolved]
  - Injection site pruritus [Recovered/Resolved]
  - Injection site reaction [Not Recovered/Not Resolved]
  - Injection site vesicles [Unknown]
